FAERS Safety Report 11221954 (Version 2)
Quarter: 2015Q3

REPORT INFORMATION
  Report Type: Spontaneous
  Country: NL (occurrence: NL)
  Receive Date: 20150626
  Receipt Date: 20150709
  Transmission Date: 20151125
  Serious: Yes (Hospitalization)
  Sender: FDA-Public Use
  Company Number: NL-PFIZER INC-2015208783

PATIENT
  Age: 17 Year
  Sex: Male
  Weight: 68 kg

DRUGS (4)
  1. FORLAX [Concomitant]
     Active Substance: POLYETHYLENE GLYCOL 4000
     Dosage: 10 G, AS NEEDED
     Dates: start: 2015
  2. BISACODYL. [Concomitant]
     Active Substance: BISACODYL
     Dosage: 5 MG, WEEKLY
     Dates: start: 2015
  3. FLUCONAZOLE. [Suspect]
     Active Substance: FLUCONAZOLE
     Indication: CANDIDA INFECTION
     Dosage: 800 MG, UNK
     Dates: start: 20150503, end: 20150608
  4. FRAXIPARINE [Concomitant]
     Active Substance: NADROPARIN CALCIUM
     Dosage: 9500 IU/ML, 1X/DAY
     Dates: start: 20150421

REACTIONS (1)
  - Hypercalcaemia [Recovering/Resolving]

NARRATIVE: CASE EVENT DATE: 20150608
